FAERS Safety Report 8909488 (Version 1)
Quarter: 2012Q4

REPORT INFORMATION
  Report Type: Spontaneous
  Country: US (occurrence: None)
  Receive Date: 20121109
  Receipt Date: 20121109
  Transmission Date: 20130627
  Serious: Yes (Hospitalization, Other)
  Sender: FDA-Public Use
  Company Number: DAV-AE-MTX-12-75

PATIENT
  Age: 25 Year
  Sex: Male

DRUGS (1)
  1. METHOTREXATE [Suspect]
     Indication: CARCINOMA

REACTIONS (7)
  - Toxicity to various agents [None]
  - Grand mal convulsion [None]
  - Thrombocytopenia [None]
  - Mucosal inflammation [None]
  - Headache [None]
  - Oral candidiasis [None]
  - Blood creatinine increased [None]
